FAERS Safety Report 23234661 (Version 1)
Quarter: 2023Q4

REPORT INFORMATION
  Report Type: Spontaneous
  Country: US (occurrence: US)
  Receive Date: 20231128
  Receipt Date: 20231128
  Transmission Date: 20240109
  Serious: Yes (Death)
  Sender: FDA-Public Use
  Company Number: US-IMMUNOCORE, LTD.-2023-IMC-002025

PATIENT
  Age: 56 Year
  Sex: Male

DRUGS (1)
  1. TEBENTAFUSP [Suspect]
     Active Substance: TEBENTAFUSP
     Indication: Uveal melanoma
     Dosage: UNK

REACTIONS (3)
  - Death [Fatal]
  - Pruritus [Unknown]
  - Rash [Unknown]
